FAERS Safety Report 9716209 (Version 1)
Quarter: 2013Q4

REPORT INFORMATION
  Report Type: Spontaneous
  Country: US (occurrence: None)
  Receive Date: 20131126
  Receipt Date: 20131126
  Transmission Date: 20140711
  Serious: Yes (Death, Hospitalization)
  Sender: FDA-Public Use
  Company Number: None

PATIENT
  Age: 82 Year
  Sex: Male
  Weight: 58.1 kg

DRUGS (2)
  1. CIPROFLOXACIN [Suspect]
     Indication: BLADDER CATHETER REMOVAL
     Route: 048
     Dates: start: 20131018, end: 20131019
  2. CIPROFLOXACIN [Suspect]
     Indication: INFECTION PROPHYLAXIS
     Route: 048
     Dates: start: 20131018, end: 20131019

REACTIONS (7)
  - Cardiac failure congestive [None]
  - Condition aggravated [None]
  - Clostridium difficile colitis [None]
  - Septic shock [None]
  - Cardiogenic shock [None]
  - Haematochezia [None]
  - Hepatic failure [None]
